FAERS Safety Report 6716057-9 (Version None)
Quarter: 2010Q2

REPORT INFORMATION
  Report Type: 
  Country: None (occurrence: None)
  Receive Date: 20100507
  Receipt Date: 20100429
  Transmission Date: 20101027
  Serious: Yes (Other)
  Sender: FDA-Public Use
  Company Number: A0843251A

PATIENT
  Age: 20 Year
  Sex: Female
  Weight: 47.3 kg

DRUGS (3)
  1. LAMICTAL [Suspect]
     Indication: BIPOLAR DISORDER
     Dosage: 25MG PER DAY
     Route: 048
     Dates: start: 20100112
  2. XANAX [Concomitant]
  3. BIRTH CONTROL PILL [Concomitant]

REACTIONS (3)
  - DEPRESSION [None]
  - INFLAMMATORY BOWEL DISEASE [None]
  - RECTAL HAEMORRHAGE [None]
